FAERS Safety Report 7070037-5 (Version None)
Quarter: 2010Q4

REPORT INFORMATION
  Report Type: 
  Country: None (occurrence: None)
  Receive Date: 20101028
  Receipt Date: 20100809
  Transmission Date: 20110411
  Serious: No
  Sender: FDA-Public Use
  Company Number: US-WYE-H16801210

PATIENT
  Age: 32 Year
  Sex: Female
  Weight: 68.1 kg

DRUGS (1)
  1. ADVIL [Suspect]
     Indication: PAIN
     Dosage: 2 TABLET EVERY 1 TOT
     Route: 048
     Dates: start: 20100801, end: 20100801

REACTIONS (8)
  - ANXIETY [None]
  - APTYALISM [None]
  - ASTHENIA [None]
  - DRY THROAT [None]
  - HEAT RASH [None]
  - OEDEMA PERIPHERAL [None]
  - PRURITUS [None]
  - RASH ERYTHEMATOUS [None]
